FAERS Safety Report 10249612 (Version 1)
Quarter: 2014Q2

REPORT INFORMATION
  Report Type: Spontaneous
  Country: US (occurrence: US)
  Receive Date: 20140620
  Receipt Date: 20140620
  Transmission Date: 20141212
  Serious: No
  Sender: FDA-Public Use
  Company Number: US-PFIZER INC-2014166308

PATIENT
  Age: 69 Year
  Sex: Female
  Weight: 90.25 kg

DRUGS (3)
  1. NEURONTIN [Suspect]
     Indication: FIBROMYALGIA
     Dosage: UNK
  2. NEURONTIN [Suspect]
     Indication: DIABETIC NEUROPATHY
  3. TENORETIC [Concomitant]
     Indication: BLOOD PRESSURE ABNORMAL
     Dosage: UNK

REACTIONS (1)
  - Drug ineffective [Unknown]
